FAERS Safety Report 23072933 (Version 3)
Quarter: 2024Q1

REPORT INFORMATION
  Report Type: Report from Study
  Country: BR (occurrence: BR)
  Receive Date: 20231017
  Receipt Date: 20240215
  Transmission Date: 20240410
  Serious: No
  Sender: FDA-Public Use
  Company Number: BR-JNJFOC-20230960279

PATIENT
  Age: 52 Year
  Sex: Female

DRUGS (5)
  1. GOLIMUMAB [Suspect]
     Active Substance: GOLIMUMAB
     Indication: Rheumatoid arthritis
     Dosage: STRENGTH: 50.00 MG / 0.50 ML
     Route: 058
  2. GOLIMUMAB [Suspect]
     Active Substance: GOLIMUMAB
  3. GOLIMUMAB [Suspect]
     Active Substance: GOLIMUMAB
  4. GOLIMUMAB [Suspect]
     Active Substance: GOLIMUMAB
  5. CHLOROQUINE [Suspect]
     Active Substance: CHLOROQUINE

REACTIONS (6)
  - Device issue [Unknown]
  - Product dose omission issue [Unknown]
  - Joint swelling [Unknown]
  - Pain in extremity [Unknown]
  - Skin discolouration [Unknown]
  - Burning sensation [Unknown]
